FAERS Safety Report 4798980-8 (Version None)
Quarter: 2005Q4

REPORT INFORMATION
  Report Type: 
  Country: None (occurrence: None)
  Receive Date: 20051011
  Receipt Date: 20050929
  Transmission Date: 20060501
  Serious: Yes (Death, Other)
  Sender: FDA-Public Use
  Company Number: 2005-08-0940

PATIENT
  Age: 70 Year
  Sex: Male

DRUGS (7)
  1. PEG-INTRON [Suspect]
     Indication: HEPATITIS C
     Dosage: 100-50 MCG SUBCUTANEOUS
     Route: 058
     Dates: start: 20050223, end: 20050609
  2. PEG-INTRON [Suspect]
     Indication: HEPATITIS C
     Dosage: 100-50 MCG SUBCUTANEOUS
     Route: 058
     Dates: start: 20050616, end: 20050630
  3. PEG-INTRON [Suspect]
     Indication: HEPATITIS C
     Dosage: 100-50 MCG SUBCUTANEOUS
     Route: 058
     Dates: start: 20050707, end: 20050804
  4. REBETOL [Suspect]
     Indication: HEPATITIS C
     Dosage: 800-600 MG ORAL
     Route: 048
     Dates: start: 20050223, end: 20050809
  5. REBETOL [Suspect]
     Indication: HEPATITIS C
     Dosage: 800-600 MG ORAL
     Route: 048
     Dates: start: 20050331, end: 20050809
  6. FERON INJECTABLE POWDER [Suspect]
     Dosage: 6 MIU
     Dates: start: 20050812, end: 20050813
  7. SELOKEN [Concomitant]

REACTIONS (7)
  - ASPIRATION [None]
  - BLOOD PRESSURE DECREASED [None]
  - BRAIN STEM HAEMORRHAGE [None]
  - CEREBRAL HAEMORRHAGE [None]
  - HYPERTENSION [None]
  - OBSTRUCTIVE AIRWAYS DISORDER [None]
  - RESPIRATORY ARREST [None]
